FAERS Safety Report 7750801-7 (Version None)
Quarter: 2011Q3

REPORT INFORMATION
  Report Type: 
  Country: None (occurrence: None)
  Receive Date: 20110914
  Receipt Date: 20110905
  Transmission Date: 20111222
  Serious: Yes (Death)
  Sender: FDA-Public Use
  Company Number: FR-CEPHALON-2011004403

PATIENT
  Sex: Female

DRUGS (2)
  1. ACTIQ [Suspect]
     Indication: PAIN
     Route: 002
     Dates: start: 20110818
  2. DURAGESIC-100 [Concomitant]
     Route: 062

REACTIONS (1)
  - DEATH [None]
